FAERS Safety Report 22136775 (Version 1)
Quarter: 2023Q1

REPORT INFORMATION
  Report Type: Spontaneous
  Country: US (occurrence: None)
  Receive Date: 20230323
  Receipt Date: 20230323
  Transmission Date: 20230418
  Serious: Yes (Other)
  Sender: FDA-Public Use
  Company Number: None

PATIENT
  Age: 93 Year
  Sex: Female
  Weight: 54.9 kg

DRUGS (8)
  1. LEVETIRACETAM [Suspect]
     Active Substance: LEVETIRACETAM
     Indication: Seizure
     Dosage: OTHER QUANTITY : 1 TABLET(S);?FREQUENCY : TWICE A DAY;?
     Route: 048
     Dates: start: 20230313, end: 20230316
  2. LISINOPRIL [Concomitant]
     Active Substance: LISINOPRIL
  3. ATORVASTATIN [Concomitant]
     Active Substance: ATORVASTATIN
  4. BABAY ASPIRIN [Concomitant]
  5. VITAMINS [Concomitant]
     Active Substance: VITAMINS
  6. AREDS VITAMIN [Concomitant]
  7. GLUCOSAMINE [Concomitant]
     Active Substance: GLUCOSAMINE
  8. FISH OIL [Concomitant]
     Active Substance: FISH OIL

REACTIONS (3)
  - Hallucination [None]
  - Irritability [None]
  - Agitation [None]

NARRATIVE: CASE EVENT DATE: 20230314
